FAERS Safety Report 22849548 (Version 7)
Quarter: 2024Q1

REPORT INFORMATION
  Report Type: Report from Study
  Country: CO (occurrence: CO)
  Receive Date: 20230822
  Receipt Date: 20240318
  Transmission Date: 20240409
  Serious: Yes (Other)
  Sender: FDA-Public Use
  Company Number: CO-002147023-NVSC2023CO180724

PATIENT
  Sex: Female
  Weight: 59 kg

DRUGS (4)
  1. KISQALI [Suspect]
     Active Substance: RIBOCICLIB
     Indication: Hormone receptor positive HER2 negative breast cancer
     Dosage: 400 MG, QD
     Route: 048
     Dates: start: 20230304
  2. KISQALI [Suspect]
     Active Substance: RIBOCICLIB
     Indication: Breast cancer metastatic
     Dosage: UNK
     Route: 065
     Dates: start: 202312
  3. FEMARA [Suspect]
     Active Substance: LETROZOLE
     Indication: Product used for unknown indication
     Dosage: 1 DOSAGE FORM, QD
     Route: 065
  4. AMLODIPINE [Concomitant]
     Active Substance: AMLODIPINE BESYLATE
     Indication: Blood pressure measurement
     Dosage: UNK
     Route: 065

REACTIONS (35)
  - Nephrolithiasis [Unknown]
  - Renal impairment [Unknown]
  - Blood creatinine increased [Unknown]
  - Cataract [Unknown]
  - Decreased immune responsiveness [Unknown]
  - Onychoclasis [Unknown]
  - Haemoglobin decreased [Unknown]
  - Asthenia [Unknown]
  - Memory impairment [Unknown]
  - Wound [Unknown]
  - Ill-defined disorder [Recovered/Resolved]
  - Fear [Unknown]
  - Abdominal discomfort [Unknown]
  - Taste disorder [Unknown]
  - Irritability [Unknown]
  - Skin exfoliation [Recovered/Resolved]
  - Breast inflammation [Unknown]
  - Madarosis [Unknown]
  - Food aversion [Unknown]
  - Pruritus [Unknown]
  - Nausea [Unknown]
  - Alopecia [Recovered/Resolved]
  - Dyspepsia [Not Recovered/Not Resolved]
  - Decreased appetite [Not Recovered/Not Resolved]
  - Visual impairment [Unknown]
  - Feeling abnormal [Unknown]
  - Vomiting [Unknown]
  - Weight decreased [Unknown]
  - Renal cyst [Unknown]
  - Urine output decreased [Unknown]
  - Malaise [Unknown]
  - Discomfort [Unknown]
  - Drug intolerance [Unknown]
  - Apathy [Unknown]
  - Weight increased [Unknown]
